FAERS Safety Report 4208366 (Version 9)
Quarter: 2013Q1

REPORT INFORMATION
  Report Type: Spontaneous
  Country: US (occurrence: US)
  Receive Date: 20040813
  Receipt Date: 20130219
  Transmission Date: 20140127
  Serious: Yes (Hospitalization, Disabling)
  Sender: FDA-Public Use
  Company Number: US-JNJFOC-20040705075

PATIENT
  Age: 6 Year
  Sex: Male
  Weight: 18.51 kg

DRUGS (5)
  1. CHILDREN^S MOTRIN [Suspect]
     Indication: COUGH
     Dates: start: 20030227
  2. CHILDREN^S MOTRIN [Suspect]
     Indication: PYREXIA
     Dates: start: 20030227
  3. ZITHROMAX [Concomitant]
  4. COUGH SYRUP [Concomitant]
  5. EYE DROPS [Concomitant]

REACTIONS (3)
  - Obliterative bronchiolitis [Recovered/Resolved with Sequelae]
  - Stevens-Johnson syndrome [Recovered/Resolved with Sequelae]
  - Respiratory failure [None]
